FAERS Safety Report 8143897-4 (Version None)
Quarter: 2012Q1

REPORT INFORMATION
  Report Type: 
  Country: None (occurrence: None)
  Receive Date: 20120103
  Receipt Date: 20111010
  Transmission Date: 20120608
  Serious: No
  Sender: FDA-Public Use
  Company Number: AE-2011-002212

PATIENT
  Age: 55 Year
  Sex: Male
  Weight: 90.7194 kg

DRUGS (5)
  1. INCIVEK [Suspect]
     Dosage: 2250 MG (750 MG, 3 IN 1 D)
     Dates: start: 20110930
  2. RIBAVIRIN [Concomitant]
  3. CELEBREX [Concomitant]
  4. PEGASYS [Concomitant]
  5. ULTRACET (ULTRACET) [Concomitant]

REACTIONS (2)
  - RASH GENERALISED [None]
  - VOMITING [None]
